FAERS Safety Report 15350382 (Version 1)
Quarter: 2018Q3

REPORT INFORMATION
  Report Type: Spontaneous
  Country: CA (occurrence: CA)
  Receive Date: 20180905
  Receipt Date: 20180905
  Transmission Date: 20181010
  Serious: Yes (Other)
  Sender: FDA-Public Use
  Company Number: PHHY2018CA080365

PATIENT
  Age: 52 Year
  Sex: Female
  Weight: 86 kg

DRUGS (2)
  1. STELARA [Suspect]
     Active Substance: USTEKINUMAB
     Indication: PSORIASIS
     Dosage: 45 MG 1 EVERY 8 WEEK
     Route: 058
  2. VITAMIN B12 [Suspect]
     Active Substance: CYANOCOBALAMIN
     Indication: PRODUCT USED FOR UNKNOWN INDICATION
     Dosage: UNK
     Route: 058

REACTIONS (4)
  - Drug hypersensitivity [Recovering/Resolving]
  - Off label use [Recovering/Resolving]
  - Staphylococcal infection [Recovering/Resolving]
  - Incorrect dose administered [Recovering/Resolving]
